FAERS Safety Report 9293975 (Version 1)
Quarter: 2013Q1

REPORT INFORMATION
  Report Type: Spontaneous
  Country: US (occurrence: None)
  Receive Date: 20121227
  Receipt Date: 20121227
  Transmission Date: 20140127
  Serious: Yes (Hospitalization)
  Sender: FDA-Public Use
  Company Number: PHEH2012US015275

PATIENT
  Age: 48 Year
  Sex: Female
  Weight: 102 kg

DRUGS (2)
  1. CLOZARIL [Suspect]
     Indication: SCHIZOPHRENIA
     Dosage: 100 MG BID + 10MG QHS ORAL
     Route: 048
     Dates: start: 2007, end: 20120712
  2. HALDOL (HALOPERIDOL DECANOATE) [Concomitant]

REACTIONS (1)
  - Chest pain [None]
